FAERS Safety Report 9289398 (Version 1)
Quarter: 2013Q2

REPORT INFORMATION
  Report Type: Spontaneous
  Country: US (occurrence: US)
  Receive Date: 20130514
  Receipt Date: 20130514
  Transmission Date: 20140414
  Serious: No
  Sender: FDA-Public Use
  Company Number: US-009507513-1305USA000364

PATIENT
  Sex: Female

DRUGS (3)
  1. ZEGERID OTC CAPSULES [Suspect]
     Indication: DYSPEPSIA
     Dosage: UNK, BID
     Route: 048
     Dates: start: 20130510, end: 20130513
  2. ZEGERID OTC CAPSULES [Suspect]
     Indication: ULCER
  3. ZEGERID OTC CAPSULES [Suspect]
     Indication: MEDICAL OBSERVATION

REACTIONS (1)
  - Inappropriate schedule of drug administration [Unknown]
